FAERS Safety Report 21000575 (Version 1)
Quarter: 2022Q2

REPORT INFORMATION
  Report Type: Spontaneous
  Country: None (occurrence: US)
  Receive Date: 20220623
  Receipt Date: 20220623
  Transmission Date: 20220721
  Serious: Yes (Other)
  Sender: FDA-Public Use
  Company Number: US-Target-2130217

PATIENT
  Age: 4 Year
  Sex: Male

DRUGS (1)
  1. DAYTIME COLD AND COUGH AND NIGHTTIME COLD AND CONGESTION CHILDRENS [Suspect]
     Active Substance: BROMPHENIRAMINE MALEATE\DEXTROMETHORPHAN HYDROBROMIDE\DIPHENHYDRAMINE HYDROCHLORIDE\PHENYLEPHRINE HY
     Indication: Nasopharyngitis

REACTIONS (3)
  - Loss of consciousness [None]
  - Hypersomnia [None]
  - Somnolence [None]
